FAERS Safety Report 9691375 (Version 1)
Quarter: 2013Q4

REPORT INFORMATION
  Report Type: Spontaneous
  Country: US (occurrence: US)
  Receive Date: 20131115
  Receipt Date: 20131115
  Transmission Date: 20140711
  Serious: Yes (Hospitalization)
  Sender: FDA-Public Use
  Company Number: US-ROXANE LABORATORIES, INC.-2013-RO-01817RO

PATIENT
  Age: 5 Year
  Sex: Male

DRUGS (1)
  1. SERTRALINE [Suspect]
     Route: 048

REACTIONS (2)
  - Accidental exposure to product [Unknown]
  - Serotonin syndrome [Recovered/Resolved]
